FAERS Safety Report 8279285-X (Version None)
Quarter: 2012Q2

REPORT INFORMATION
  Report Type: 
  Country: None (occurrence: None)
  Receive Date: 20120412
  Receipt Date: 20120404
  Transmission Date: 20120825
  Serious: Yes (Other)
  Sender: FDA-Public Use
  Company Number: PHHY2012US029043

PATIENT
  Age: 82 Year
  Sex: Male

DRUGS (3)
  1. BUFFERIN [Suspect]
     Indication: BACK PAIN
     Dosage: 2 DF, EVERY MORNING
     Route: 048
     Dates: start: 19550101
  2. BUFFERIN [Suspect]
     Indication: BLOOD VISCOSITY INCREASED
  3. BUFFERIN [Suspect]
     Indication: MUSCULOSKELETAL STIFFNESS

REACTIONS (2)
  - BACK INJURY [None]
  - INCORRECT DRUG ADMINISTRATION DURATION [None]
